FAERS Safety Report 24136576 (Version 1)
Quarter: 2024Q3

REPORT INFORMATION
  Report Type: Spontaneous
  Country: US (occurrence: US)
  Receive Date: 20240725
  Receipt Date: 20240725
  Transmission Date: 20241017
  Serious: Yes (Life-Threatening, Hospitalization, Other)
  Sender: AMGEN
  Company Number: US-AMGEN-USASP2024141816

PATIENT
  Age: 57 Year
  Sex: Male

DRUGS (6)
  1. FILGRASTIM [Suspect]
     Active Substance: FILGRASTIM
     Indication: Thrombocytopenia
     Dosage: UNK
     Route: 065
  2. FILGRASTIM [Suspect]
     Active Substance: FILGRASTIM
     Indication: Pancytopenia
  3. FILGRASTIM [Suspect]
     Active Substance: FILGRASTIM
     Indication: Neutropenia
  4. PREDNISONE [Concomitant]
     Active Substance: PREDNISONE
     Indication: Gout
     Dosage: UNK
  5. ALLOPURINOL [Concomitant]
     Active Substance: ALLOPURINOL
     Indication: Gout
     Dosage: UNK
  6. AMIODARONE [Concomitant]
     Active Substance: AMIODARONE
     Dosage: UNK

REACTIONS (12)
  - Septic shock [Unknown]
  - Staphylococcus test positive [Unknown]
  - Marrow hyperplasia [Unknown]
  - Thrombocytopenia [Unknown]
  - Microcytic anaemia [Unknown]
  - Hyperchromic anaemia [Unknown]
  - Pancytopenia [Unknown]
  - Bacillus test positive [Unknown]
  - Pneumonia pseudomonal [Unknown]
  - Decubitus ulcer [Unknown]
  - Enterococcal infection [Unknown]
  - Gout [Unknown]
